FAERS Safety Report 20865778 (Version 2)
Quarter: 2022Q2

REPORT INFORMATION
  Report Type: Spontaneous
  Country: US (occurrence: US)
  Receive Date: 20220524
  Receipt Date: 20220609
  Transmission Date: 20220721
  Serious: Yes (Hospitalization)
  Sender: FDA-Public Use
  Company Number: US-TEVA-2022-US-2039466

PATIENT
  Age: 58 Year
  Sex: Male

DRUGS (17)
  1. IDARUBICIN [Suspect]
     Active Substance: IDARUBICIN
     Indication: Myeloid leukaemia
     Route: 065
  2. FILGRASTIM [Suspect]
     Active Substance: FILGRASTIM
     Indication: Myeloid leukaemia
     Route: 065
  3. FILGRASTIM [Suspect]
     Active Substance: FILGRASTIM
     Indication: Neutropenia
  4. CYTARABINE [Suspect]
     Active Substance: CYTARABINE
     Indication: Myeloid leukaemia
     Route: 065
  5. POSACONAZOLE [Suspect]
     Active Substance: POSACONAZOLE
     Indication: Prophylaxis
     Dosage: 300 MILLIGRAM DAILY; PROPHYLACTIC THERAPY
     Route: 065
  6. POSACONAZOLE [Suspect]
     Active Substance: POSACONAZOLE
     Indication: Mucormycosis
     Dosage: 300 MILLIGRAM DAILY; OFF LABEL TREATMENT FOR MUCORMYCOSIS
     Route: 065
  7. CLADRIBINE [Concomitant]
     Active Substance: CLADRIBINE
     Indication: Myeloid leukaemia
     Route: 065
  8. MITOXANTRONE [Concomitant]
     Active Substance: MITOXANTRONE HYDROCHLORIDE
     Indication: Myeloid leukaemia
     Route: 065
  9. ACYCLOVIR [Concomitant]
     Active Substance: ACYCLOVIR
     Indication: Prophylaxis
     Dosage: 800 MILLIGRAM DAILY;
     Route: 065
  10. CIPROFLOXACIN [Concomitant]
     Active Substance: CIPROFLOXACIN
     Indication: Prophylaxis
     Dosage: 500 MILLIGRAM DAILY;
     Route: 065
  11. NAFCILLIN [Concomitant]
     Active Substance: NAFCILLIN SODIUM
     Indication: Staphylococcal bacteraemia
     Route: 065
  12. DOCOSANOL [Concomitant]
     Active Substance: DOCOSANOL
     Indication: Rash
     Route: 061
  13. CLOBETASOL [Concomitant]
     Active Substance: CLOBETASOL
     Indication: Rash
     Route: 061
  14. LIDOCAINE [Concomitant]
     Active Substance: LIDOCAINE
     Indication: Rash
     Route: 061
  15. DAPTOMYCIN [Concomitant]
     Active Substance: DAPTOMYCIN
     Indication: Prophylaxis
     Route: 065
  16. LEVOFLOXACIN [Concomitant]
     Active Substance: LEVOFLOXACIN
     Indication: Prophylaxis
     Route: 065
  17. MEROPENEM [Concomitant]
     Active Substance: MEROPENEM
     Indication: Evidence based treatment
     Route: 065

REACTIONS (3)
  - Drug resistance [Unknown]
  - Drug ineffective [Unknown]
  - Off label use [Unknown]
